FAERS Safety Report 21804327 (Version 8)
Quarter: 2024Q2

REPORT INFORMATION
  Report Type: Other
  Country: DE (occurrence: None)
  Receive Date: 20230102
  Receipt Date: 20240424
  Transmission Date: 20240717
  Serious: No
  Sender: FDA-Public Use
  Company Number: DE-ROCHE-3127465

PATIENT
  Age: 40 Year
  Sex: Female

DRUGS (3)
  1. OCREVUS [Suspect]
     Active Substance: OCRELIZUMAB
     Indication: Relapsing-remitting multiple sclerosis
     Dosage: DATE OF 2ND MAINTENANCE DOSE ADMINISTERED : 14/OCT/2022?LAST INFUSION RECEIVED ON 20/APR/2023?600MG,
     Route: 042
     Dates: start: 20210722
  2. IBUPROFEN [Concomitant]
     Active Substance: IBUPROFEN
  3. KESIMPTA [Concomitant]
     Active Substance: OFATUMUMAB

REACTIONS (4)
  - Coronavirus infection [Recovered/Resolved]
  - Haematoma [Recovered/Resolved]
  - Eye haemorrhage [Recovered/Resolved]
  - Hidradenitis [Recovered/Resolved]

NARRATIVE: CASE EVENT DATE: 20220620
